FAERS Safety Report 10783618 (Version 3)
Quarter: 2015Q2

REPORT INFORMATION
  Report Type: Spontaneous
  Country: JP (occurrence: JP)
  Receive Date: 20150210
  Receipt Date: 20150427
  Transmission Date: 20150821
  Serious: Yes (Hospitalization, Other)
  Sender: FDA-Public Use
  Company Number: JP-PFIZER INC-2015048819

PATIENT
  Age: 65 Year
  Sex: Male
  Weight: 68.6 kg

DRUGS (5)
  1. KENKETSU GLOVENIN I [Concomitant]
     Indication: DISSEMINATED INTRAVASCULAR COAGULATION
     Dosage: 2500 MG, 1X/DAY
     Route: 042
     Dates: start: 20150114, end: 20150116
  2. METHYLPREDNISOLONE. [Concomitant]
     Active Substance: METHYLPREDNISOLONE
     Indication: DYSPNOEA
     Dosage: 125 MG, 2X/DAY
     Route: 042
     Dates: start: 20150114, end: 20150116
  3. ELASPOL [Concomitant]
     Active Substance: SIVELESTAT SODIUM
     Indication: DYSPNOEA
     Dosage: 100 MG, 1X/DAY
     Route: 042
     Dates: start: 20150114, end: 20150119
  4. MEROPEN [Suspect]
     Active Substance: MEROPENEM
     Indication: PNEUMONIA
     Dosage: 0.5 G, 1X/DAY
     Route: 042
     Dates: start: 20150113, end: 20150125
  5. DALACIN [Suspect]
     Active Substance: CLINDAMYCIN\CLINDAMYCIN PHOSPHATE
     Indication: PNEUMONIA
     Dosage: 600 MG, 1X/DAY
     Route: 042
     Dates: start: 20150114, end: 20150125

REACTIONS (1)
  - Pancytopenia [Recovered/Resolved]

NARRATIVE: CASE EVENT DATE: 20150204
